FAERS Safety Report 25964757 (Version 1)
Quarter: 2025Q4

REPORT INFORMATION
  Report Type: Spontaneous
  Country: JP (occurrence: JP)
  Receive Date: 20251027
  Receipt Date: 20251027
  Transmission Date: 20260118
  Serious: Yes (Other)
  Sender: AMGEN
  Company Number: JP-AMGEN-JPNSP2025209329

PATIENT

DRUGS (7)
  1. PEGFILGRASTIM [Suspect]
     Active Substance: PEGFILGRASTIM
     Indication: Febrile neutropenia
     Dosage: 3.6 BODY ON DAY 4 ADMINISTERED EVERY 2 WEEKS FOR SIX CYCLE
     Route: 065
  2. FILGRASTIM [Suspect]
     Active Substance: FILGRASTIM
     Indication: Febrile neutropenia
     Route: 065
  3. METHOTREXATE [Concomitant]
     Active Substance: METHOTREXATE
     Dosage: 30 MILLIGRAM/SQ. METER ON DAY 1
     Route: 065
  4. VINBLASTINE [Concomitant]
     Active Substance: VINBLASTINE
     Dosage: 03 MILLIGRAM/SQ. METER ON DAY 2
  5. DOXORUBICIN [Concomitant]
     Active Substance: DOXORUBICIN
     Dosage: 30 MILLIGRAM/SQ. METER DAY 2
  6. PIRARUBICIN [Concomitant]
     Active Substance: PIRARUBICIN
     Dosage: 30 MILLIGRAM/SQ. METER DAY 2
  7. CISPLATIN [Concomitant]
     Active Substance: CISPLATIN
     Dosage: 70 MILLIGRAM/SQ. METER ON DAY 2

REACTIONS (12)
  - Febrile neutropenia [Unknown]
  - Neutropenia [Unknown]
  - Leukopenia [Unknown]
  - Anaemia [Unknown]
  - Thrombocytopenia [Unknown]
  - Decreased appetite [Unknown]
  - Fatigue [Unknown]
  - Neuropsychological symptoms [Unknown]
  - Weight decreased [Unknown]
  - Mobility decreased [Unknown]
  - Blood disorder [Unknown]
  - Adverse event [Unknown]
